FAERS Safety Report 7482729-4 (Version None)
Quarter: 2011Q2

REPORT INFORMATION
  Report Type: 
  Country: None (occurrence: None)
  Receive Date: 20110516
  Receipt Date: 20110510
  Transmission Date: 20111010
  Serious: Yes (Other)
  Sender: FDA-Public Use
  Company Number: US-CEPHALON-2011002294

PATIENT
  Age: 15 Year
  Sex: Female

DRUGS (3)
  1. FENTANYL [Concomitant]
  2. FENTORA [Suspect]
     Indication: PANCREATITIS NECROTISING
     Route: 002
  3. DILAUDID [Concomitant]

REACTIONS (1)
  - DRUG PRESCRIBING ERROR [None]
